FAERS Safety Report 9587389 (Version 1)
Quarter: 2013Q4

REPORT INFORMATION
  Report Type: Spontaneous
  Country: US (occurrence: US)
  Receive Date: 20131003
  Receipt Date: 20131003
  Transmission Date: 20140711
  Serious: Yes (Hospitalization)
  Sender: FDA-Public Use
  Company Number: US-B.I. PHARMACEUTICALS,INC./RIDGEFIELD-2013-BI-30096BP

PATIENT
  Sex: Male

DRUGS (1)
  1. GILOTRIF [Suspect]
     Indication: LUNG CARCINOMA CELL TYPE UNSPECIFIED STAGE 0
     Dosage: 40 MG
     Route: 048
     Dates: start: 20130821

REACTIONS (5)
  - Brain neoplasm [Unknown]
  - Amnesia [Unknown]
  - Atrial fibrillation [Unknown]
  - Rash pustular [Unknown]
  - Decreased appetite [Unknown]
